FAERS Safety Report 8056711-2 (Version None)
Quarter: 2012Q1

REPORT INFORMATION
  Report Type: 
  Country: None (occurrence: None)
  Receive Date: 20120119
  Receipt Date: 20120109
  Transmission Date: 20120608
  Serious: Yes (Hospitalization)
  Sender: FDA-Public Use
  Company Number: FR-PFIZER INC-2012006885

PATIENT
  Age: 59 Year
  Sex: Male

DRUGS (7)
  1. FLUOROURACIL [Suspect]
     Dosage: 2400 MG/M2, CYCLIC ON 48 HOURS
     Route: 041
     Dates: start: 20100505, end: 20100506
  2. LEVOLEUCOVORIN CALCIUM [Suspect]
     Indication: COLON CANCER METASTATIC
     Dosage: 200 MG/M2, CYCLIC
     Route: 042
     Dates: start: 20100225, end: 20100505
  3. IRINOTECAN HCL [Suspect]
     Indication: COLON CANCER METASTATIC
     Dosage: 260 MG/M2, CYCLIC
     Route: 042
     Dates: start: 20100225, end: 20100505
  4. FLUOROURACIL [Suspect]
     Dosage: 400 MG/M2, CYCLIC
     Route: 040
     Dates: start: 20100505, end: 20100505
  5. ERBITUX [Suspect]
     Dosage: 250 MG/M2, CYCLIC
     Dates: start: 20100505, end: 20100505
  6. ERBITUX [Suspect]
     Indication: COLON CANCER METASTATIC
     Dosage: 400 MG/M2, CYCLIC
     Dates: start: 20100225
  7. FLUOROURACIL [Suspect]
     Indication: COLON CANCER METASTATIC
     Dosage: 250 MG/M2, CYCLIC
     Route: 042
     Dates: start: 20100225

REACTIONS (1)
  - GENERAL PHYSICAL HEALTH DETERIORATION [None]
